FAERS Safety Report 5026736-X (Version None)
Quarter: 2006Q2

REPORT INFORMATION
  Report Type: 
  Country: None (occurrence: None)
  Receive Date: 20060615
  Receipt Date: 20060313
  Transmission Date: 20061013
  Serious: Yes (Other)
  Sender: FDA-Public Use
  Company Number: PHRM2006FR01083

PATIENT
  Age: 23 Month
  Sex: Female
  Weight: 8.8 kg

DRUGS (3)
  1. TRILEPTAL [Suspect]
     Indication: CLONIC CONVULSION
     Dosage: 30 MG/KG/DAY
     Route: 048
     Dates: start: 20060126
  2. EPITOMAX [Suspect]
     Dosage: 15 MG, BID
     Dates: start: 20051203
  3. DI-HYDAN [Concomitant]
     Dosage: 15 MG, TID
     Dates: start: 20051220

REACTIONS (1)
  - MYOCLONUS [None]
